FAERS Safety Report 4775560-1 (Version None)
Quarter: 2005Q3

REPORT INFORMATION
  Report Type: 
  Country: None (occurrence: None)
  Receive Date: 20050922
  Receipt Date: 20050908
  Transmission Date: 20060218
  Serious: Yes (Hospitalization, Other)
  Sender: FDA-Public Use
  Company Number: 2005GB01734

PATIENT
  Age: 21877 Day
  Sex: Female

DRUGS (5)
  1. ARIMIDEX [Suspect]
     Indication: BREAST CANCER
     Route: 048
  2. NOLVADEX [Suspect]
     Indication: BREAST CANCER
     Route: 048
  3. PROPRANOLOL [Concomitant]
     Route: 048
  4. CITALOPRAM [Concomitant]
     Route: 048
  5. DETRUSITOL XL [Concomitant]

REACTIONS (1)
  - ENDOMETRIAL HYPERPLASIA [None]
